FAERS Safety Report 4624032-3 (Version None)
Quarter: 2005Q1

REPORT INFORMATION
  Report Type: 
  Country: None (occurrence: None)
  Receive Date: 20050329
  Receipt Date: 20050316
  Transmission Date: 20050727
  Serious: Yes (Life-Threatening)
  Sender: FDA-Public Use
  Company Number: 2005046933

PATIENT
  Age: 38 Year
  Sex: Male

DRUGS (6)
  1. MEDROL [Suspect]
     Indication: URTICARIA
     Dates: start: 20040116
  2. TIXOCORTOL PIVALATE [Suspect]
     Indication: SINUSITIS
     Dates: start: 20040116
  3. ACETYLCYSTEINE [Suspect]
     Indication: SINUSITIS
     Dosage: ORAL
     Route: 048
     Dates: start: 20040116
  4. CLAVULIN (AMOXICILLIN TRIHYDRATE, CLAVULANATE POTASSIUM) [Suspect]
     Indication: SINUSITIS
     Dosage: ORAL
     Route: 048
     Dates: start: 20040116
  5. ACETYLSALICYLIC ACID SRT [Suspect]
     Indication: SINUSITIS
     Dosage: ORAL
     Route: 048
     Dates: start: 20040116
  6. BETAMETHASONE [Suspect]
     Indication: URTICARIA
     Dates: start: 20040116

REACTIONS (6)
  - BLOOD PRESSURE DECREASED [None]
  - DIZZINESS [None]
  - DRUG INEFFECTIVE [None]
  - LOSS OF CONSCIOUSNESS [None]
  - PULSE PRESSURE DECREASED [None]
  - URTICARIA [None]
